FAERS Safety Report 7492807-1 (Version None)
Quarter: 2011Q2

REPORT INFORMATION
  Report Type: 
  Country: None (occurrence: None)
  Receive Date: 20110512
  Receipt Date: 20110509
  Transmission Date: 20111010
  Serious: Yes (Death, Hospitalization)
  Sender: FDA-Public Use
  Company Number: 2011SP019187

PATIENT
  Age: 72 Year
  Sex: Female
  Weight: 58.1965 kg

DRUGS (2)
  1. TEMOZOLOMIDE [Suspect]
     Indication: ACUTE MYELOID LEUKAEMIA
     Dosage: 320 MG, QD, PO
     Route: 048
     Dates: start: 20110331, end: 20110406
  2. ABT-888 [Suspect]
     Indication: ACUTE MYELOID LEUKAEMIA
     Dosage: 20 MG, BID, PO
     Route: 048
     Dates: start: 20110329, end: 20110409

REACTIONS (3)
  - ACUTE MYELOID LEUKAEMIA [None]
  - DISEASE PROGRESSION [None]
  - PNEUMONIA [None]
